FAERS Safety Report 5900767-7 (Version None)
Quarter: 2008Q3

REPORT INFORMATION
  Report Type: 
  Country: None (occurrence: None)
  Receive Date: 20080925
  Receipt Date: 20080912
  Transmission Date: 20090109
  Serious: Yes (Life-Threatening)
  Sender: FDA-Public Use
  Company Number: 2008000846

PATIENT
  Age: 48 Year
  Sex: Female

DRUGS (14)
  1. ERLOTINIB (ERLOTINIB HCL) (TABLET) (ERLOTINIB HCL) [Suspect]
     Indication: LUNG ADENOCARCINOMA
     Dosage: (150 MG, QD), ORAL
     Route: 048
     Dates: start: 20080306, end: 20080325
  2. MUCOSTA (REBAMIPIDE) [Concomitant]
  3. SUCRALFATE [Concomitant]
  4. PANTOSIN (PANTETHINE) [Concomitant]
  5. MAGNESIUM OXIDE (MAGNESIUM OXIDE) [Concomitant]
  6. HIRUDOID (HEPARINOID) [Concomitant]
  7. METHADERM (DEXAMETHASONE DIPROPIONATE) [Concomitant]
  8. NEO-MEDROL (NEO-MEDROL) [Concomitant]
  9. FENTANYL-100 [Concomitant]
  10. CELECOXIB [Concomitant]
  11. FELBINAC (FELBINAC) [Concomitant]
  12. PARIET (RABEPRAZOLE SODIUM ) [Concomitant]
  13. BACTRIM [Concomitant]
  14. CELECOXIB [Concomitant]

REACTIONS (4)
  - DEEP VEIN THROMBOSIS [None]
  - PULMONARY EMBOLISM [None]
  - PULMONARY HYPERTENSION [None]
  - RIGHT VENTRICULAR FAILURE [None]
